FAERS Safety Report 6186124-X (Version None)
Quarter: 2009Q2

REPORT INFORMATION
  Report Type: 
  Country: None (occurrence: None)
  Receive Date: 20090507
  Receipt Date: 20090507
  Transmission Date: 20091009
  Serious: Yes (Other)
  Sender: FDA-Public Use
  Company Number: None

PATIENT
  Age: 37 Year
  Sex: Female
  Weight: 65.7716 kg

DRUGS (2)
  1. MUCINEX DM [Suspect]
     Indication: COUGH
     Dosage: 1 PILL 1 TIME PO ONE DOSE
     Route: 048
     Dates: start: 20090427, end: 20090427
  2. MUCINEX DM [Suspect]
     Indication: NASOPHARYNGITIS
     Dosage: 1 PILL 1 TIME PO ONE DOSE
     Route: 048
     Dates: start: 20090427, end: 20090427

REACTIONS (3)
  - DEHYDRATION [None]
  - DIARRHOEA [None]
  - PALPITATIONS [None]
